FAERS Safety Report 5872182-6 (Version None)
Quarter: 2008Q3

REPORT INFORMATION
  Report Type: 
  Country: None (occurrence: None)
  Receive Date: 20080905
  Receipt Date: 20080827
  Transmission Date: 20090109
  Serious: Yes (Hospitalization)
  Sender: FDA-Public Use
  Company Number: US-JNJFOC-20080805972

PATIENT
  Age: 28 Year
  Sex: Female

DRUGS (2)
  1. ACETAMINOPHEN [Suspect]
  2. ACETAMINOPHEN [Suspect]
     Indication: INTENTIONAL OVERDOSE
     Dosage: 5-10 GRAMS

REACTIONS (2)
  - HEPATIC FAILURE [None]
  - INTENTIONAL OVERDOSE [None]
